FAERS Safety Report 4895405-9 (Version None)
Quarter: 2006Q1

REPORT INFORMATION
  Report Type: 
  Country: None (occurrence: None)
  Receive Date: 20060130
  Receipt Date: 20041220
  Transmission Date: 20060701
  Serious: No
  Sender: FDA-Public Use
  Company Number: US-GLAXOSMITHKLINE-A0559045A

PATIENT
  Sex: Female

DRUGS (2)
  1. COMBIVIR [Suspect]
     Dosage: 1TAB TWICE PER DAY
     Route: 048
     Dates: start: 20041216
  2. VACCINE [Concomitant]
     Indication: DRUG USE FOR UNKNOWN INDICATION
     Route: 042
     Dates: start: 20040927, end: 20041112

REACTIONS (1)
  - NAUSEA [None]
